FAERS Safety Report 13475577 (Version 1)
Quarter: 2017Q2

REPORT INFORMATION
  Report Type: Spontaneous
  Country: US (occurrence: US)
  Receive Date: 20170424
  Receipt Date: 20170424
  Transmission Date: 20170830
  Serious: No
  Sender: FDA-Public Use
  Company Number: None

PATIENT
  Age: 57 Year
  Sex: Female

DRUGS (1)
  1. TASIGNA [Suspect]
     Active Substance: NILOTINIB
     Indication: LYMPHOCYTIC LEUKAEMIA

REACTIONS (4)
  - Decreased appetite [None]
  - Asthenia [None]
  - Gastroenteritis viral [None]
  - Diarrhoea [None]

NARRATIVE: CASE EVENT DATE: 20170411
